FAERS Safety Report 18939327 (Version 1)
Quarter: 2021Q1

REPORT INFORMATION
  Report Type: Spontaneous
  Country: US (occurrence: US)
  Receive Date: 20210225
  Receipt Date: 20210225
  Transmission Date: 20210420
  Serious: Yes (Other)
  Sender: FDA-Public Use
  Company Number: US-GLAXOSMITHKLINE-US2021GSK053506

PATIENT
  Sex: Male

DRUGS (4)
  1. ZANTAC [Suspect]
     Active Substance: RANITIDINE HYDROCHLORIDE
     Dosage: 150 MG, 1X OR 2X PER DAY
     Route: 065
     Dates: start: 198001, end: 199101
  2. ZANTAC [Suspect]
     Active Substance: RANITIDINE HYDROCHLORIDE
     Dosage: 150 MG, 1X OR 2X PER DAY
     Route: 065
     Dates: start: 198001, end: 199101
  3. ZANTAC [Suspect]
     Active Substance: RANITIDINE HYDROCHLORIDE
     Indication: DYSPEPSIA
     Dosage: 75 MG, 1X OR 2X PER DAY
     Route: 065
     Dates: start: 198001, end: 199101
  4. ZANTAC [Suspect]
     Active Substance: RANITIDINE HYDROCHLORIDE
     Indication: DYSPEPSIA
     Dosage: 75 MG, 1X OR 2X PER DAY
     Route: 065
     Dates: start: 198001, end: 199101

REACTIONS (2)
  - Gastric neoplasm [Unknown]
  - Hepatic neoplasm [Unknown]
